FAERS Safety Report 19014669 (Version 4)
Quarter: 2021Q4

REPORT INFORMATION
  Report Type: Spontaneous
  Country: IT (occurrence: IT)
  Receive Date: 20210317
  Receipt Date: 20211101
  Transmission Date: 20220303
  Serious: Yes (Other)
  Sender: FDA-Public Use
  Company Number: None

PATIENT
  Age: 44 Year
  Sex: Male

DRUGS (2)
  1. TAMSULOSIN HYDROCHLORIDE [Interacting]
     Active Substance: TAMSULOSIN HYDROCHLORIDE
     Indication: Benign prostatic hyperplasia
     Dosage: 1 DF, QD
     Route: 048
     Dates: start: 20210128, end: 20210129
  2. RAMIPRIL [Interacting]
     Active Substance: RAMIPRIL
     Indication: Hypertension
     Dosage: 1 DF, QD
     Route: 048
     Dates: start: 20201201, end: 20210129

REACTIONS (7)
  - Loss of consciousness [Recovered/Resolved]
  - Muscle rigidity [Recovered/Resolved]
  - Vertigo [Recovered/Resolved]
  - Drug interaction [Unknown]
  - Orthostatic hypotension [Recovered/Resolved]
  - Nausea [Recovered/Resolved]
  - Dizziness [Unknown]

NARRATIVE: CASE EVENT DATE: 20210128
